FAERS Safety Report 8287450-0 (Version None)
Quarter: 2012Q2

REPORT INFORMATION
  Report Type: 
  Country: None (occurrence: None)
  Receive Date: 20120411
  Receipt Date: 20120330
  Transmission Date: 20120825
  Serious: Yes (Death, Hospitalization)
  Sender: FDA-Public Use
  Company Number: WAES 1203USA00995

PATIENT
  Age: 68 Year
  Sex: Female

DRUGS (14)
  1. MEXITIL [Concomitant]
  2. PREDNISOLONE [Concomitant]
  3. ZOLINZA [Suspect]
     Indication: MYCOSIS FUNGOIDES
     Dosage: 300 MG/DAILY 200 MG/DAILY
     Route: 048
     Dates: start: 20120217, end: 20120219
  4. ZOLINZA [Suspect]
     Indication: MYCOSIS FUNGOIDES
     Dosage: 300 MG/DAILY 200 MG/DAILY
     Route: 048
     Dates: start: 20120131, end: 20120214
  5. ZOLINZA [Suspect]
     Indication: MYCOSIS FUNGOIDES
     Dosage: 300 MG/DAILY 200 MG/DAILY
     Route: 048
     Dates: start: 20120224, end: 20120227
  6. WARFARIN SODIUM [Concomitant]
  7. CLONAZEPAM [Concomitant]
  8. LANSOPRAZOLE [Concomitant]
  9. GABAPENTIN [Concomitant]
  10. MIRTAZAPINE [Concomitant]
  11. COTRIM [Concomitant]
  12. VEPESID [Concomitant]
  13. RISEDRONATE SODIUM [Concomitant]
  14. LAMISIL [Concomitant]

REACTIONS (9)
  - DROWNING [None]
  - PLATELET COUNT DECREASED [None]
  - CARDIO-RESPIRATORY ARREST [None]
  - DEEP VEIN THROMBOSIS [None]
  - DECREASED APPETITE [None]
  - EMBOLISM VENOUS [None]
  - FIBRIN D DIMER INCREASED [None]
  - FIBRIN DEGRADATION PRODUCTS INCREASED [None]
  - BLOOD GLUCOSE INCREASED [None]
